FAERS Safety Report 18751310 (Version 1)
Quarter: 2021Q1

REPORT INFORMATION
  Report Type: Spontaneous
  Country: US (occurrence: US)
  Receive Date: 20210118
  Receipt Date: 20210118
  Transmission Date: 20210419
  Serious: No
  Sender: FDA-Public Use
  Company Number: US-USWM, LLC-USW201812-001839

PATIENT
  Sex: Female

DRUGS (1)
  1. NADOLOL. [Suspect]
     Active Substance: NADOLOL
     Indication: BLOOD PRESSURE ABNORMAL
     Dosage: UNKNOWN

REACTIONS (6)
  - Loss of consciousness [Unknown]
  - Illness [Unknown]
  - Dizziness [Unknown]
  - Chest pain [Unknown]
  - Drug ineffective [Unknown]
  - Drug hypersensitivity [Unknown]
